FAERS Safety Report 13351385 (Version 3)
Quarter: 2017Q2

REPORT INFORMATION
  Report Type: Report from Study
  Country: JP (occurrence: JP)
  Receive Date: 20170320
  Receipt Date: 20170517
  Transmission Date: 20170830
  Serious: Yes (Life-Threatening, Hospitalization, Other)
  Sender: FDA-Public Use
  Company Number: JP-BAXTER-2017BAX011557

PATIENT
  Age: 59 Year
  Sex: Female

DRUGS (9)
  1. PERTUZUMAB [Suspect]
     Active Substance: PERTUZUMAB
     Dosage: MOST RECENT DOSE PRIOR TO ONSET OF SERIOUS ADVERSE EVENTS.
     Route: 042
     Dates: start: 20150612
  2. CARVEDILOL. [Concomitant]
     Active Substance: CARVEDILOL
     Indication: EJECTION FRACTION DECREASED
     Route: 065
     Dates: start: 20160705, end: 20170227
  3. PERTUZUMAB [Suspect]
     Active Substance: PERTUZUMAB
     Indication: HER-2 POSITIVE BREAST CANCER
     Dosage: LOADING DOSE AS PER PROTOCOL (ON DAY 1 OF CYCLE 1 ONLY)
     Route: 042
     Dates: start: 20140606, end: 20140606
  4. LETROZOLE. [Concomitant]
     Active Substance: LETROZOLE
     Indication: HORMONE THERAPY
     Route: 065
     Dates: start: 20151113
  5. TRASTUZUMAB EMTANSINE [Suspect]
     Active Substance: ADO-TRASTUZUMAB EMTANSINE
     Indication: HER-2 POSITIVE BREAST CANCER
     Dosage: AS PER PROTOCOL
     Route: 042
     Dates: start: 20140606
  6. PERTUZUMAB [Suspect]
     Active Substance: PERTUZUMAB
     Dosage: MAINTENANCE DOSE
     Route: 042
  7. TRASTUZUMAB EMTANSINE [Suspect]
     Active Substance: ADO-TRASTUZUMAB EMTANSINE
     Dosage: MOST RECENT DOSE PRIOR TO ONSET OF SERIOUS ADVERSE EVENTS.
     Route: 042
     Dates: start: 20150612
  8. ENDOXAN 1G [Suspect]
     Active Substance: CYCLOPHOSPHAMIDE
     Indication: HER-2 POSITIVE BREAST CANCER
     Dosage: INFUSION
     Route: 042
     Dates: start: 20140314
  9. DOXORUBICIN [Suspect]
     Active Substance: DOXORUBICIN
     Indication: HER-2 POSITIVE BREAST CANCER
     Dosage: INFUSION
     Route: 042
     Dates: start: 20140314

REACTIONS (2)
  - Shock [Recovered/Resolved]
  - Cardiac failure congestive [Recovered/Resolved]

NARRATIVE: CASE EVENT DATE: 20170227
